FAERS Safety Report 11088312 (Version 1)
Quarter: 2015Q2

REPORT INFORMATION
  Report Type: Spontaneous
  Country: US (occurrence: None)
  Receive Date: 20150430
  Receipt Date: 20150430
  Transmission Date: 20150821
  Serious: Yes (Other)
  Sender: FDA-Public Use
  Company Number: GB-SEPTODONT-201502791

PATIENT
  Age: 40 Year
  Sex: Female
  Weight: 62.6 kg

DRUGS (1)
  1. LIDOCAINE HYDROCHLORIDE; ADRENALINE TARTRATE [Suspect]
     Active Substance: EPINEPHRINE BITARTRATE\LIDOCAINE HYDROCHLORIDE
     Indication: LOCAL ANAESTHESIA
     Route: 004
     Dates: start: 20150414, end: 20150414

REACTIONS (7)
  - Limb discomfort [None]
  - Irritability [None]
  - Nervousness [None]
  - Paraesthesia [None]
  - Hypertension [None]
  - Tachycardia [None]
  - Tremor [None]

NARRATIVE: CASE EVENT DATE: 20150414
